FAERS Safety Report 15776542 (Version 5)
Quarter: 2020Q1

REPORT INFORMATION
  Report Type: Report from Study
  Country: IT (occurrence: IT)
  Receive Date: 20181231
  Receipt Date: 20200110
  Transmission Date: 20200409
  Serious: Yes (Other)
  Sender: FDA-Public Use
  Company Number: IT-INCYTE CORPORATION-2018IN012553

PATIENT

DRUGS (2)
  1. JAKAVI [Suspect]
     Active Substance: RUXOLITINIB
     Indication: POLYCYTHAEMIA VERA
     Dosage: 20 OT, UNK
     Route: 048
     Dates: start: 20180705, end: 20180823
  2. JAKAVI [Suspect]
     Active Substance: RUXOLITINIB
     Dosage: 10 OT, UNK
     Route: 048
     Dates: start: 20180824

REACTIONS (12)
  - Nasal septum deviation [Unknown]
  - Monocyte count decreased [Unknown]
  - Hypoacusis [Unknown]
  - Idiopathic intracranial hypertension [Not Recovered/Not Resolved]
  - Abdominal discomfort [Recovering/Resolving]
  - Open fracture [Recovered/Resolved]
  - Mean cell haemoglobin concentration increased [Unknown]
  - Platelet count decreased [Unknown]
  - Disorientation [Recovering/Resolving]
  - Haematocrit decreased [Unknown]
  - Asthenia [Unknown]
  - Feeling abnormal [Unknown]

NARRATIVE: CASE EVENT DATE: 20180824
